FAERS Safety Report 5701751-9 (Version None)
Quarter: 2008Q2

REPORT INFORMATION
  Report Type: 
  Country: None (occurrence: None)
  Receive Date: 20080408
  Receipt Date: 20080325
  Transmission Date: 20081010
  Serious: Yes (Hospitalization)
  Sender: FDA-Public Use
  Company Number: 2008PV034592

PATIENT
  Age: 87 Year
  Sex: Male

DRUGS (4)
  1. SYMLIN [Suspect]
     Indication: TYPE 2 DIABETES MELLITUS
     Dosage: 120 MCG; BID; SC, 60 MCG; BID; SC
     Route: 058
     Dates: start: 20080101, end: 20080101
  2. SYMLIN [Suspect]
     Indication: TYPE 2 DIABETES MELLITUS
     Dosage: 120 MCG; BID; SC, 60 MCG; BID; SC
     Route: 058
     Dates: start: 20080101
  3. INSULIN INSULATARD NPH NORDISK [Suspect]
     Indication: TYPE 2 DIABETES MELLITUS
     Dosage: ; PRN; SC
     Route: 058
  4. REGULAR INSULIN [Suspect]
     Indication: TYPE 2 DIABETES MELLITUS
     Dosage: ; PRN; SC
     Route: 058

REACTIONS (1)
  - HYPOGLYCAEMIA [None]
